FAERS Safety Report 4860195-2 (Version None)
Quarter: 2005Q4

REPORT INFORMATION
  Report Type: 
  Country: None (occurrence: None)
  Receive Date: 20051215
  Receipt Date: 20051207
  Transmission Date: 20060501
  Serious: Yes (Other)
  Sender: FDA-Public Use
  Company Number: TPA2005A01628

PATIENT
  Age: 28 Year
  Sex: Female
  Weight: 62.1428 kg

DRUGS (6)
  1. ROZEREM [Suspect]
     Indication: INSOMNIA
     Dosage: 8 MG, QHS, PER ORAL
     Route: 048
     Dates: start: 20051124
  2. SEROQUEL [Concomitant]
  3. LEXAPRO (ESCITALOPRAM OXALATE) (10 MILLIGRAM) [Concomitant]
  4. DIFLUCAN (FLUCONAZOLE) (150 MILLIGRAM) [Concomitant]
  5. CLONIDINE (CLONIDINE) (0.1 MILLIGRAM) [Concomitant]
  6. FLEXERIL (CYCLOBENZAPRINE HYDROCHLORIDE) (10 MILLIGRAM) [Concomitant]

REACTIONS (2)
  - ARRHYTHMIA [None]
  - ELECTROCARDIOGRAM QT PROLONGED [None]
